FAERS Safety Report 4500837-4 (Version None)
Quarter: 2004Q4

REPORT INFORMATION
  Report Type: 
  Country: None (occurrence: None)
  Receive Date: 20041112
  Receipt Date: 20041102
  Transmission Date: 20050328
  Serious: Yes (Hospitalization)
  Sender: FDA-Public Use
  Company Number: 2004UW22648

PATIENT
  Age: 78 Year
  Sex: Male

DRUGS (2)
  1. CRESTOR [Suspect]
     Dosage: 5 MG PO
     Route: 048
     Dates: start: 20040901
  2. UNSPECIFIED MEDICENES [Concomitant]

REACTIONS (3)
  - ABDOMINAL DISTENSION [None]
  - INFLUENZA LIKE ILLNESS [None]
  - MYALGIA [None]
